FAERS Safety Report 24730535 (Version 1)
Quarter: 2024Q4

REPORT INFORMATION
  Report Type: Spontaneous
  Country: US (occurrence: US)
  Receive Date: 20241213
  Receipt Date: 20241213
  Transmission Date: 20250115
  Serious: Yes (Other)
  Sender: SANOFI AVENTIS
  Company Number: US-DialogSolutions-SAAVPROD-PI707541-C1

PATIENT
  Age: 47 Year
  Sex: Male

DRUGS (3)
  1. INSULIN GLARGINE [Suspect]
     Active Substance: INSULIN GLARGINE
     Indication: Diabetes mellitus
     Dosage: 15 IU, HS
     Route: 058
  2. INSULIN GLARGINE [Suspect]
     Active Substance: INSULIN GLARGINE
     Dosage: DOSE DECREASED
     Route: 058
  3. INSULIN GLARGINE [Suspect]
     Active Substance: INSULIN GLARGINE
     Dosage: UNK
     Route: 058

REACTIONS (8)
  - Uraemic neuropathy [Recovering/Resolving]
  - Vasogenic cerebral oedema [Recovering/Resolving]
  - Extravasation blood [Recovering/Resolving]
  - Central nervous system lesion [Recovering/Resolving]
  - Chorea [Recovered/Resolved]
  - Parkinsonism [Recovering/Resolving]
  - Cerebrovascular disorder [Recovering/Resolving]
  - Blood glucose decreased [Recovered/Resolved]
